FAERS Safety Report 23525054 (Version 2)
Quarter: 2024Q4

REPORT INFORMATION
  Report Type: Report from Study
  Country: GB (occurrence: GB)
  Receive Date: 20240215
  Receipt Date: 20241028
  Transmission Date: 20250115
  Serious: Yes (Hospitalization)
  Sender: TEVA
  Company Number: GB-TEVA-VS-3152885

PATIENT
  Age: 48 Year
  Sex: Male

DRUGS (1)
  1. AJOVY [Suspect]
     Active Substance: FREMANEZUMAB-VFRM
     Indication: Headache
     Dosage: FORM STRENGTH: 225MG/1.5ML
     Route: 058
     Dates: start: 20231228, end: 20240128

REACTIONS (11)
  - Deep vein thrombosis [Unknown]
  - Tremor [Unknown]
  - Pain [Unknown]
  - Feeling cold [Unknown]
  - Drug ineffective [Unknown]
  - Pulmonary embolism [Unknown]
  - Feeling abnormal [Unknown]
  - General physical health deterioration [Unknown]
  - Chills [Unknown]
  - Headache [Unknown]
  - Ocular discomfort [Unknown]

NARRATIVE: CASE EVENT DATE: 20240101
